FAERS Safety Report 8587606-3 (Version None)
Quarter: 2012Q3

REPORT INFORMATION
  Report Type: 
  Country: None (occurrence: None)
  Receive Date: 20120810
  Receipt Date: 20120807
  Transmission Date: 20120928
  Serious: Yes (Other)
  Sender: FDA-Public Use
  Company Number: CA-AMGEN-QUU423747

PATIENT
  Age: 69 Year
  Sex: Male

DRUGS (11)
  1. REMICADE [Suspect]
     Dosage: UNK UNK, UNK
     Route: 042
     Dates: end: 20100501
  2. TELMISARTAN/HYDROCHLOROTHIAZIDE [Concomitant]
  3. ALLOPURINOL [Concomitant]
  4. PREDNISONE TAB [Concomitant]
  5. PROPOXYPHENE HCL [Concomitant]
  6. CALCITONIN SALMON [Concomitant]
  7. METHOTREXATE SODIUM [Concomitant]
  8. ENBREL [Suspect]
     Indication: RHEUMATOID ARTHRITIS
     Dosage: 50 MG, QWK
     Route: 058
     Dates: start: 20031005
  9. MICARDIS HCT [Concomitant]
  10. MOMETASONE FUROATE [Concomitant]
  11. RABEPRAZOLE SODIUM [Concomitant]

REACTIONS (3)
  - CONTUSION [None]
  - FALL [None]
  - DEEP VEIN THROMBOSIS [None]
